FAERS Safety Report 7629681-6 (Version None)
Quarter: 2011Q3

REPORT INFORMATION
  Report Type: 
  Country: None (occurrence: None)
  Receive Date: 20110722
  Receipt Date: 20110715
  Transmission Date: 20111222
  Serious: Yes (Life-Threatening, Hospitalization)
  Sender: FDA-Public Use
  Company Number: US-JNJFOC-20110706939

PATIENT
  Age: 14 Year
  Sex: Female

DRUGS (5)
  1. DIPHENHYDRAMINE HCL [Suspect]
     Route: 048
  2. DIPHENHYDRAMINE HCL [Suspect]
     Route: 048
  3. ULTRACET [Suspect]
     Indication: PRODUCT USED FOR UNKNOWN INDICATION
     Route: 048
     Dates: start: 20110221, end: 20110221
  4. TYLENOL W/ CODEINE [Suspect]
     Indication: PRODUCT USED FOR UNKNOWN INDICATION
     Route: 048
     Dates: start: 20110221, end: 20110221
  5. DIPHENHYDRAMINE HCL [Suspect]
     Indication: PRODUCT USED FOR UNKNOWN INDICATION
     Route: 048
     Dates: start: 20110221, end: 20110221

REACTIONS (5)
  - LOSS OF CONSCIOUSNESS [None]
  - INTENTIONAL DRUG MISUSE [None]
  - CONVULSION [None]
  - TOXICITY TO VARIOUS AGENTS [None]
  - TACHYCARDIA [None]
